FAERS Safety Report 22257812 (Version 3)
Quarter: 2023Q2

REPORT INFORMATION
  Report Type: Spontaneous
  Country: PL (occurrence: None)
  Receive Date: 20230427
  Receipt Date: 20230628
  Transmission Date: 20230722
  Serious: Yes (Other)
  Sender: FDA-Public Use
  Company Number: PL-ROCHE-3327595

PATIENT
  Sex: Male

DRUGS (2)
  1. EVRYSDI [Suspect]
     Active Substance: RISDIPLAM
     Indication: Spinal muscular atrophy
     Dosage: STRENGTH: 0.75MG/1 ML
     Route: 048
     Dates: start: 20230405
  2. APAP [Concomitant]
     Active Substance: ACETAMINOPHEN
     Dosage: 1 TABLET

REACTIONS (9)
  - Mental disorder [Unknown]
  - Retching [Unknown]
  - Abdominal pain [Unknown]
  - Diarrhoea [Unknown]
  - Asthenia [Unknown]
  - Back pain [Unknown]
  - Product physical consistency issue [Unknown]
  - Malaise [Recovered/Resolved]
  - Enteritis infectious [Unknown]
